FAERS Safety Report 6251992-X (Version None)
Quarter: 2009Q2

REPORT INFORMATION
  Report Type: 
  Country: None (occurrence: None)
  Receive Date: 20090630
  Receipt Date: 20050202
  Transmission Date: 20091009
  Serious: Yes (Hospitalization)
  Sender: FDA-Public Use
  Company Number: US-ROCHE-638337

PATIENT
  Sex: Male

DRUGS (36)
  1. ENFUVIRTIDE [Suspect]
     Route: 065
     Dates: start: 20030707, end: 20051223
  2. INVIRASE [Concomitant]
     Dosage: FREQUENCY: QD.
     Dates: start: 20021110, end: 20031020
  3. VIREAD [Concomitant]
     Dosage: FREQUENCY: QD.
     Dates: start: 20021118, end: 20051223
  4. NORVIR [Concomitant]
     Dosage: FREQUENCY: QD.
     Dates: start: 20030203, end: 20040101
  5. NORVIR [Concomitant]
     Dosage: FREQUENCY: QD.
     Dates: start: 20050707, end: 20051223
  6. EPIVIR [Concomitant]
     Dosage: FREQUENCY: QD.
     Dates: start: 20030224
  7. VIRACEPT [Concomitant]
     Dates: start: 20031020, end: 20050101
  8. APTIVUS [Concomitant]
     Dates: start: 20050707, end: 20051223
  9. ETHAMBUTOL [Concomitant]
     Dates: start: 20030210, end: 20051223
  10. LEVAQUIN [Concomitant]
     Dosage: FREQUENCY: QD.
     Dates: start: 20030210, end: 20051223
  11. ZITHROMAX [Concomitant]
     Dosage: FREQUENCY: QD.
     Dates: start: 20030210, end: 20051223
  12. MOXIFLOXACIN HCL [Concomitant]
     Dosage: FREQUENCY: QD.
     Dates: start: 20041105, end: 20041110
  13. VALCYTE [Concomitant]
     Dosage: FREQUENCY: QD.
     Dates: start: 20040101, end: 20050214
  14. CANCIDAS [Concomitant]
     Route: 042
     Dates: start: 20050202, end: 20050101
  15. CANCIDAS [Concomitant]
     Dosage: FREQUENCY: ONCE.
     Route: 042
     Dates: start: 20050804, end: 20050804
  16. CANCIDAS [Concomitant]
     Dosage: STOP DATE: 2005.
     Route: 042
     Dates: start: 20050805
  17. CEFTAZIDIME [Concomitant]
     Dates: start: 20050202, end: 20050101
  18. VANCOMYCIN [Concomitant]
     Route: 042
     Dates: start: 20050202, end: 20050101
  19. FOSCARNET [Concomitant]
     Dates: start: 20050224, end: 20050228
  20. FLAGYL [Concomitant]
     Dates: start: 20050228, end: 20050101
  21. GANCICLOVIR [Concomitant]
     Dates: start: 20050228, end: 20050101
  22. RIFABUTIN [Concomitant]
     Dosage: FREQUENCY: QD.
     Dates: start: 20050302, end: 20050815
  23. VFEND [Concomitant]
     Dates: start: 20050314, end: 20050815
  24. VFEND [Concomitant]
     Dates: start: 20051011, end: 20051223
  25. CASPOFUNGIN [Concomitant]
     Dosage: FREQUENCY: ONCE.
     Route: 042
     Dates: start: 20050802, end: 20050802
  26. CASPOFUNGIN [Concomitant]
     Dosage: FREQUENCY: QD. STOP DATE: 2005.
     Route: 042
     Dates: start: 20050803
  27. CASPOFUNGIN [Concomitant]
     Dosage: FREQUENCY: ONCE.
     Route: 042
     Dates: start: 20050815, end: 20050815
  28. CASPOFUNGIN [Concomitant]
     Dosage: FREQUENCY: QD.
     Route: 042
     Dates: start: 20050816, end: 20051011
  29. AMPHOTERICIN B [Concomitant]
     Dosage: DOSE: 5CC.
     Dates: start: 20051026
  30. AMPHOTERICIN B [Concomitant]
     Dates: start: 20051205, end: 20051205
  31. AMPHOTERICIN B [Concomitant]
     Dates: start: 20051206, end: 20051223
  32. MEPRON [Concomitant]
     Dates: start: 20051129, end: 20051223
  33. ABELCET [Concomitant]
     Dates: start: 20051212, end: 20051223
  34. AMIKACIN [Concomitant]
     Dates: end: 20050101
  35. BACTRIM DS [Concomitant]
     Dosage: FREQUENCY: QD.
     Dates: end: 20051129
  36. ROCEPHIN [Concomitant]
     Dates: end: 20050101

REACTIONS (7)
  - ANAEMIA [None]
  - CANDIDIASIS [None]
  - CYTOMEGALOVIRUS OESOPHAGITIS [None]
  - ENTEROBACTER INFECTION [None]
  - HAEMANGIOMA OF LIVER [None]
  - ILEUS [None]
  - NEUTROPENIA [None]
